FAERS Safety Report 16393040 (Version 1)
Quarter: 2019Q2

REPORT INFORMATION
  Report Type: Spontaneous
  Country: IT (occurrence: IT)
  Receive Date: 20190605
  Receipt Date: 20190605
  Transmission Date: 20190711
  Serious: Yes (Hospitalization)
  Sender: FDA-Public Use
  Company Number: IT-ACCORD-131367

PATIENT
  Age: 74 Year
  Sex: Female

DRUGS (7)
  1. ACETYLSALICYLIC ACID [Concomitant]
     Active Substance: ASPIRIN
     Route: 048
  2. RAMIPRIL. [Concomitant]
     Active Substance: RAMIPRIL
     Route: 048
  3. ATENOLOL/ATENOLOL HYDROCHLORIDE [Concomitant]
     Route: 048
  4. DELORAZEPAM [Concomitant]
     Active Substance: DELORAZEPAM
     Route: 047
  5. SERTRALINE [Suspect]
     Active Substance: SERTRALINE HYDROCHLORIDE
     Indication: DEPRESSION
     Route: 048
  6. ATORVASTATIN [Concomitant]
     Active Substance: ATORVASTATIN
     Route: 048
  7. LEVOTHYROXINE. [Concomitant]
     Active Substance: LEVOTHYROXINE
     Route: 048

REACTIONS (1)
  - Long QT syndrome [Unknown]

NARRATIVE: CASE EVENT DATE: 20190224
